FAERS Safety Report 25547007 (Version 2)
Quarter: 2025Q3

REPORT INFORMATION
  Report Type: Report from Study
  Country: US (occurrence: US)
  Receive Date: 20250714
  Receipt Date: 20250806
  Transmission Date: 20251020
  Serious: No
  Sender: JOHNSON AND JOHNSON
  Company Number: US-JNJFOC-20250704679

PATIENT
  Age: 6 Decade
  Sex: Female

DRUGS (1)
  1. GUSELKUMAB [Suspect]
     Active Substance: GUSELKUMAB
     Indication: Psoriatic arthropathy
     Dosage: 100MG PEN SUBCUTANEOUS AT WEEK 0 (17-DEC-2024), WEEK 4, THEN EVERY 8 WEEKS THEREAFTER (UNKNOWN DATES
     Route: 058
     Dates: start: 20241217

REACTIONS (2)
  - Device deployment issue [Unknown]
  - Drug ineffective [Unknown]

NARRATIVE: CASE EVENT DATE: 20250601
